FAERS Safety Report 9199130 (Version 1)
Quarter: 2013Q1

REPORT INFORMATION
  Report Type: Spontaneous
  Country: US (occurrence: None)
  Receive Date: 20130325
  Receipt Date: 20130325
  Transmission Date: 20140127
  Serious: No
  Sender: FDA-Public Use
  Company Number: 2013US-004531

PATIENT
  Age: 66 Year
  Sex: Female
  Weight: 78 kg

DRUGS (21)
  1. OMONTYS (PEGINESATIDE) SOLUTION FOR INJECTION [Suspect]
     Indication: NEPHROGENIC ANAEMIA
     Route: 042
     Dates: start: 20130118, end: 20130118
  2. EPOGEN (EPOETIN ALFA) [Concomitant]
  3. ZONE PERFECT BAR [Concomitant]
  4. CLONIDINE HCL (CLONIDINE HYDROCHLORIDE) [Concomitant]
  5. COLACE (DOCUSATE SODIUM) [Concomitant]
  6. COREG (CARVEDILOL) [Concomitant]
  7. ETHYL CHLORIDE (ETHYL CHLORIDE) [Concomitant]
  8. FAMOTIDINE (FAMOTIDINE) [Concomitant]
  9. HYDROCODONE/ACETAMINOPHEN (HYDROCODONE BITARTRATE, PARACETAMOL) [Concomitant]
  10. JANUVIA (SITAGLIPTIN PHOSPHATE) [Concomitant]
  11. LISINOPRIL (LISINOPRIL) [Concomitant]
  12. METOCLOPRAMIDE (METOCLOPRAMIDE) [Concomitant]
  13. PLAVIX (CLOPIDOGREL BISULATE) [Concomitant]
  14. PROCARDIA (NIFEDIPINE) [Concomitant]
  15. RENAL TABS (ATROPINE SULFATE, BENZOIC ACID, GELSEMIUM SEMPERVIRENS, HYOSCYAMINE SULFATE, METHENAMINE, METHYLTHIONINIUM CHLORIDE, PHJENYL SALICYLATE) [Concomitant]
  16. RENVELA (SEVELAMER CARBONATE) [Concomitant]
  17. TUMS (CALCIUM CARBONATE) [Concomitant]
  18. ZEMPLAR (PARICALCITOL) [Concomitant]
  19. XANAX (ALPRAZOLAM) [Concomitant]
  20. VYTORIN (EZETIMIBE, SIMVASTATIN) [Concomitant]
  21. SODIUM BICARBONATE (SODIUM BICARBONATE) [Concomitant]

REACTIONS (9)
  - Eye swelling [None]
  - Vomiting [None]
  - Nausea [None]
  - Dyspnoea [None]
  - Retching [None]
  - Hyperhidrosis [None]
  - Hypersensitivity [None]
  - Feeling abnormal [None]
  - Pruritus generalised [None]
